FAERS Safety Report 4437219-X (Version None)
Quarter: 2004Q3

REPORT INFORMATION
  Report Type: 
  Country: None (occurrence: None)
  Receive Date: 20040726
  Receipt Date: 20040414
  Transmission Date: 20050211
  Serious: No
  Sender: FDA-Public Use
  Company Number: USA030228353

PATIENT
  Age: 71 Year
  Sex: Female
  Weight: 76 kg

DRUGS (7)
  1. FORTEO [Suspect]
     Indication: OSTEOPOROSIS
     Dosage: 20 UG/1 DAY
     Dates: start: 20030201
  2. ATACAND [Concomitant]
  3. TRICOLOR (FENOFIBRATE) [Concomitant]
  4. NEURONTIN [Concomitant]
  5. VICODIN [Concomitant]
  6. AMITRIPTYLINE HCL [Concomitant]
  7. LIDODERM (LIDOCAINE) [Concomitant]

REACTIONS (2)
  - INJECTION SITE HAEMORRHAGE [None]
  - UNDERDOSE [None]
